FAERS Safety Report 8480092-3 (Version None)
Quarter: 2012Q2

REPORT INFORMATION
  Report Type: 
  Country: None (occurrence: None)
  Receive Date: 20120629
  Receipt Date: 20120619
  Transmission Date: 20120825
  Serious: Yes (Other)
  Sender: FDA-Public Use
  Company Number: US-ELI_LILLY_AND_COMPANY-US201204003331

PATIENT
  Sex: Female
  Weight: 81.179 kg

DRUGS (13)
  1. CYMBALTA [Suspect]
     Indication: FIBROMYALGIA
     Dosage: 60 MG, BID
     Route: 048
     Dates: start: 20060101
  2. VENLAFAXINE HCL [Concomitant]
  3. FUROSEMIDE [Concomitant]
  4. NASO [Concomitant]
  5. CYMBALTA [Suspect]
     Dosage: 60 MG, BID
     Route: 048
  6. VITAMIN D [Concomitant]
  7. ALBINTIL [Concomitant]
  8. CRESTON [Concomitant]
  9. PATHOMYCIN [Concomitant]
  10. OXYCODONE HCL [Concomitant]
  11. NEXIUM [Concomitant]
  12. ASCORBIC ACID [Concomitant]
  13. SOMA [Concomitant]

REACTIONS (4)
  - DRY MOUTH [None]
  - OEDEMA PERIPHERAL [None]
  - STOMATITIS [None]
  - BLISTER [None]
